FAERS Safety Report 22594783 (Version 8)
Quarter: 2024Q3

REPORT INFORMATION
  Report Type: Spontaneous
  Country: US (occurrence: US)
  Receive Date: 20230613
  Receipt Date: 20240925
  Transmission Date: 20241016
  Serious: No
  Sender: PFIZER
  Company Number: US-PFIZER INC-PV202300094125

PATIENT
  Age: 70 Year
  Sex: Female

DRUGS (1)
  1. IBRANCE [Suspect]
     Active Substance: PALBOCICLIB
     Indication: Breast cancer stage IV
     Dosage: TAKE 1 TABLET (125 MG) ORALLY FOR 21 DAYS, OFF FOR 7 DAYS; REPEAT EVERY 28 DAYS
     Route: 048

REACTIONS (3)
  - Gait disturbance [Unknown]
  - Full blood count decreased [Unknown]
  - Product prescribing issue [Unknown]
